FAERS Safety Report 16886632 (Version 1)
Quarter: 2019Q4

REPORT INFORMATION
  Report Type: Spontaneous
  Country: US (occurrence: US)
  Receive Date: 20191004
  Receipt Date: 20191004
  Transmission Date: 20200122
  Serious: No
  Sender: FDA-Public Use
  Company Number: US-SA-2019SA273631

PATIENT

DRUGS (1)
  1. TOUJEO [Suspect]
     Active Substance: INSULIN GLARGINE
     Indication: TYPE 2 DIABETES MELLITUS
     Dosage: 19 U, HS
     Route: 065

REACTIONS (9)
  - Muscle spasms [Unknown]
  - Musculoskeletal pain [Unknown]
  - Diarrhoea [Unknown]
  - Gingival swelling [Unknown]
  - Pain in extremity [Unknown]
  - Blood glucose increased [Unknown]
  - Dizziness [Unknown]
  - Vision blurred [Unknown]
  - Nausea [Unknown]
